FAERS Safety Report 10306361 (Version 2)
Quarter: 2014Q3

REPORT INFORMATION
  Report Type: Spontaneous
  Country: IT (occurrence: None)
  Receive Date: 20140711
  Receipt Date: 20140724
  Transmission Date: 20150326
  Serious: Yes (Other)
  Sender: FDA-Public Use
  Company Number: 2014-IT-008038

PATIENT
  Age: 23 Year
  Sex: Female

DRUGS (5)
  1. PREDNISONE (PREDNISONE) [Concomitant]
     Active Substance: PREDNISONE
  2. VINCRISTINE (VINCRISTINE) [Concomitant]
     Active Substance: VINCRISTINE
  3. DAUNORUBICIN (DAUNORUBICIN) [Concomitant]
     Active Substance: DAUNORUBICIN
  4. ERWINASE (ASPARAGINAS ERWINIA CHRYSANTHEMI) INJECTION [Suspect]
     Active Substance: ASPARAGINASE ERWINIA CHRYSANTHEMI
     Indication: ACUTE LYMPHOCYTIC LEUKAEMIA
     Dosage: DAYS 12, 15, 18, 21 AND 24
     Route: 042
  5. DEXAMETHASONE (DEXAMETHASONE) [Concomitant]
     Active Substance: DEXAMETHASONE

REACTIONS (8)
  - Cholestasis [None]
  - Hepatic necrosis [None]
  - Hepatic failure [None]
  - Hepatic steatosis [None]
  - Blood albumin decreased [None]
  - Protein total decreased [None]
  - Hyperglycaemia [None]
  - Hepatotoxicity [None]
